FAERS Safety Report 19707711 (Version 1)
Quarter: 2021Q3

REPORT INFORMATION
  Report Type: Spontaneous
  Country: US (occurrence: US)
  Receive Date: 20210816
  Receipt Date: 20210816
  Transmission Date: 20211014
  Serious: No
  Sender: FDA-Public Use
  Company Number: None

PATIENT
  Age: 75 Year
  Sex: Male

DRUGS (2)
  1. THALOMID [Suspect]
     Active Substance: THALIDOMIDE
     Indication: ROSAI-DORFMAN SYNDROME
     Route: 048
     Dates: start: 20210722
  2. THALOMID [Suspect]
     Active Substance: THALIDOMIDE
     Indication: XANTHOGRANULOMA
     Route: 048
     Dates: start: 20210722

REACTIONS (3)
  - General physical health deterioration [None]
  - Pulmonary oedema [None]
  - Protein total decreased [None]

NARRATIVE: CASE EVENT DATE: 20210803
